FAERS Safety Report 7238556-6 (Version None)
Quarter: 2011Q1

REPORT INFORMATION
  Report Type: 
  Country: None (occurrence: None)
  Receive Date: 20110121
  Receipt Date: 20110114
  Transmission Date: 20110831
  Serious: Yes (Hospitalization)
  Sender: FDA-Public Use
  Company Number: FR-JNJFOC-20110104009

PATIENT
  Age: 80 Year
  Sex: Female

DRUGS (6)
  1. CONTRAMAL [Suspect]
     Indication: PAIN
     Route: 048
  2. PYOSTACINE [Concomitant]
     Indication: PNEUMONIA KLEBSIELLA
     Route: 065
  3. TAVANIC [Suspect]
     Indication: PNEUMONIA KLEBSIELLA
     Route: 048
  4. CILASTATIN W/IMIPENEM [Concomitant]
     Indication: PNEUMONIA KLEBSIELLA
     Route: 065
  5. INVANZ [Suspect]
     Indication: PNEUMONIA KLEBSIELLA
     Route: 042
  6. TRIFLUCAN [Suspect]
     Indication: CANDIDURIA
     Route: 048

REACTIONS (5)
  - HYPERGLYCAEMIA [None]
  - HYPOTHERMIA [None]
  - CONVULSION [None]
  - HYPOGLYCAEMIA [None]
  - ALTERED STATE OF CONSCIOUSNESS [None]
